FAERS Safety Report 4345618-X (Version None)
Quarter: 2004Q2

REPORT INFORMATION
  Report Type: 
  Country: None (occurrence: None)
  Receive Date: 20040421
  Receipt Date: 20040414
  Transmission Date: 20050107
  Serious: Yes (Hospitalization)
  Sender: FDA-Public Use
  Company Number: US-JNJFOC-20040300184

PATIENT
  Age: 77 Year
  Sex: Male
  Weight: 74.8435 kg

DRUGS (2)
  1. DURAGESIC [Suspect]
     Indication: DRUG USE FOR UNKNOWN INDICATION
     Dosage: SEE IMAGE
     Route: 062
     Dates: end: 20040201
  2. DURAGESIC [Suspect]
     Indication: DRUG USE FOR UNKNOWN INDICATION
     Dosage: SEE IMAGE
     Route: 062
     Dates: start: 20040201

REACTIONS (6)
  - ACCIDENTAL OVERDOSE [None]
  - DYSARTHRIA [None]
  - DYSPNOEA [None]
  - MENTAL STATUS CHANGES [None]
  - PHARMACEUTICAL PRODUCT COMPLAINT [None]
  - SEDATION [None]
